FAERS Safety Report 9665724 (Version 2)
Quarter: 2014Q1

REPORT INFORMATION
  Report Type: Spontaneous
  Country: IE (occurrence: IE)
  Receive Date: 20131104
  Receipt Date: 20140325
  Transmission Date: 20141002
  Serious: Yes (Hospitalization, Other)
  Sender: FDA-Public Use
  Company Number: PHFR2013IE006187

PATIENT
  Age: 40 Year
  Sex: Male

DRUGS (6)
  1. CLOZARIL [Suspect]
     Indication: SCHIZOPHRENIA, PARANOID TYPE
     Dosage: UNK
     Route: 048
     Dates: start: 20040914
  2. CLOZARIL [Suspect]
     Dosage: 325 MG, DAILY
     Route: 048
     Dates: start: 201309
  3. ALLEGRON [Concomitant]
     Dosage: 60 MG, DAILY
     Route: 048
  4. TOPAMAX [Concomitant]
     Dosage: 50 MG, DAILY
     Route: 048
  5. ZIMOVANE [Concomitant]
     Indication: SLEEP DISORDER
     Dosage: 15 MG, DAILY
     Route: 048
  6. TENORMIN [Concomitant]
     Dosage: 100 MG, DAILY
     Route: 048

REACTIONS (5)
  - Circulatory collapse [Recovered/Resolved]
  - Haemoglobin decreased [Recovering/Resolving]
  - Peptic ulcer haemorrhage [Recovered/Resolved]
  - White blood cell count increased [Unknown]
  - Neutrophil count increased [Unknown]
